FAERS Safety Report 8833068 (Version 2)
Quarter: 2012Q4

REPORT INFORMATION
  Report Type: 
  Country: AU (occurrence: AU)
  Receive Date: 20121010
  Receipt Date: 20121017
  Transmission Date: 20130627
  Serious: Yes (Other)
  Sender: FDA-Public Use
  Company Number: AU-PFIZER INC-2012246578

PATIENT
  Age: 55 Year
  Sex: Male

DRUGS (2)
  1. ERAXIS [Suspect]
     Dosage: 100 mg, 1x/day
     Route: 042
  2. VORICONAZOLE [Suspect]
     Indication: BRONCHOPULMONARY ASPERGILLOSIS
     Dosage: 200 mg, 2x/day
     Route: 042

REACTIONS (4)
  - Enterococcal infection [Unknown]
  - Delirium [Unknown]
  - Confusional state [Unknown]
  - Rash [Unknown]
